FAERS Safety Report 10064491 (Version 2)
Quarter: 2014Q2

REPORT INFORMATION
  Report Type: Spontaneous
  Country: US (occurrence: US)
  Receive Date: 20140408
  Receipt Date: 20140506
  Transmission Date: 20141212
  Serious: Yes (Other)
  Sender: FDA-Public Use
  Company Number: 2014SP001006

PATIENT
  Age: 30 Year
  Sex: Female
  Weight: 83 kg

DRUGS (6)
  1. LATUDA [Suspect]
     Indication: MOOD SWINGS
     Route: 048
     Dates: start: 20140225
  2. LATUDA [Suspect]
     Indication: DEPRESSION
     Route: 048
     Dates: start: 20140225
  3. LATUDA [Suspect]
     Indication: PARANOIA
     Route: 048
     Dates: start: 20140225
  4. LAMICTAL [Concomitant]
     Indication: MOOD SWINGS
     Dates: start: 20120425
  5. ATIVAN [Concomitant]
     Indication: ANXIETY
     Dates: start: 20120828
  6. ATIVAN [Concomitant]
     Indication: PANIC ATTACK
     Dates: start: 20120828

REACTIONS (1)
  - Psychotic disorder [Recovered/Resolved]
